FAERS Safety Report 16561140 (Version 3)
Quarter: 2020Q1

REPORT INFORMATION
  Report Type: Spontaneous
  Country: GB (occurrence: GB)
  Receive Date: 20190711
  Receipt Date: 20200326
  Transmission Date: 20200409
  Serious: Yes (Hospitalization, Other)
  Sender: FDA-Public Use
  Company Number: GB-MYLANLABS-2019M1063434

PATIENT
  Age: 55 Year
  Sex: Female
  Weight: 32 kg

DRUGS (3)
  1. FENTANYL. [Suspect]
     Active Substance: FENTANYL
     Dosage: DURING INITIAL 24 HOURS OF HOSPITALISATION, IT WAS FOUND THAT SHE HAD APPLIED 10 NEW
  2. FENTANYL. [Suspect]
     Active Substance: FENTANYL
     Indication: PAIN
     Dosage: 100 MICROGRAM
     Route: 062
  3. FENTANYL. [Suspect]
     Active Substance: FENTANYL
     Indication: ANALGESIC THERAPY
     Dosage: PRIOR TO THE ADMISSION, TWELVE TRANSDERMAL FENTANYL PATCHES 100MICROG/HOUR ON HER
     Route: 062

REACTIONS (6)
  - Drug ineffective [Unknown]
  - Loss of consciousness [Recovered/Resolved]
  - Overdose [Recovered/Resolved]
  - Respiratory depression [Recovered/Resolved]
  - Toxicity to various agents [Recovered/Resolved]
  - Intentional product misuse [Recovered/Resolved]
